FAERS Safety Report 5403194-4 (Version None)
Quarter: 2007Q3

REPORT INFORMATION
  Report Type: 
  Country: None (occurrence: None)
  Receive Date: 20070801
  Receipt Date: 20070720
  Transmission Date: 20080115
  Serious: Yes (Other)
  Sender: FDA-Public Use
  Company Number: US-PFIZER INC-2007060874

PATIENT
  Sex: Male
  Weight: 83.9 kg

DRUGS (14)
  1. NEURONTIN [Suspect]
     Indication: HERPES ZOSTER
  2. LYRICA [Suspect]
     Indication: HERPES ZOSTER
  3. PRAVACHOL [Concomitant]
  4. ZETIA [Concomitant]
  5. XANAX [Concomitant]
  6. WELLBUTRIN [Concomitant]
  7. VOLTAREN [Concomitant]
  8. ALTACE [Concomitant]
  9. ZYRTEC [Concomitant]
  10. ZOCOR [Concomitant]
  11. CYMBALTA [Concomitant]
  12. ALPHAGAN [Concomitant]
  13. TRAVATAN [Concomitant]
  14. ANTIGLAUCOMA PREPARATIONS AND MIOTICS [Concomitant]

REACTIONS (9)
  - ACTIVITIES OF DAILY LIVING IMPAIRED [None]
  - BURNING SENSATION [None]
  - GAIT DISTURBANCE [None]
  - IMPAIRED DRIVING ABILITY [None]
  - INSOMNIA [None]
  - MYALGIA [None]
  - NERVOUSNESS [None]
  - PARAESTHESIA [None]
  - VISUAL DISTURBANCE [None]
